FAERS Safety Report 9230949 (Version 3)
Quarter: 2013Q3

REPORT INFORMATION
  Report Type: Spontaneous
  Country: US (occurrence: US)
  Receive Date: 20130415
  Receipt Date: 20130829
  Transmission Date: 20140515
  Serious: No
  Sender: FDA-Public Use
  Company Number: US-009507513-1304USA005525

PATIENT
  Sex: Female
  Weight: 52.61 kg

DRUGS (13)
  1. VICTRELIS [Suspect]
     Indication: CHRONIC HEPATITIS C
     Dosage: 800 MG(4 CAPSULES), TID
     Route: 048
     Dates: start: 20130315
  2. VICTRELIS [Suspect]
     Dosage: 800 MG, TID
     Route: 048
  3. VICTRELIS [Suspect]
     Dosage: 800 MG, TID
     Route: 048
  4. VICTRELIS [Suspect]
     Dosage: 800 MG, TID
     Route: 048
     Dates: start: 201302
  5. PEGASYS [Suspect]
  6. RIBAPAK [Suspect]
  7. RIBASPHERE [Suspect]
  8. PROCRIT [Concomitant]
  9. NEUPOGEN [Concomitant]
  10. FLAXSEED [Concomitant]
  11. LYSINE [Concomitant]
  12. PROBIOTICA [Concomitant]
  13. ASCORBIC ACID [Concomitant]

REACTIONS (9)
  - White blood cell count decreased [Unknown]
  - Malaise [Not Recovered/Not Resolved]
  - Hallucination [Not Recovered/Not Resolved]
  - Rhinalgia [Not Recovered/Not Resolved]
  - Chemotherapy [Unknown]
  - Abdominal discomfort [Not Recovered/Not Resolved]
  - Dyspepsia [Unknown]
  - Flushing [Unknown]
  - Alopecia [Unknown]
